FAERS Safety Report 5331569-0 (Version None)
Quarter: 2007Q2

REPORT INFORMATION
  Report Type: 
  Country: None (occurrence: None)
  Receive Date: 20070522
  Receipt Date: 20070510
  Transmission Date: 20071010
  Serious: Yes (Disabling, Other)
  Sender: FDA-Public Use
  Company Number: BR-PFIZER INC-2007034564

PATIENT
  Sex: Male
  Weight: 67 kg

DRUGS (2)
  1. SU-011,248 [Suspect]
     Indication: METASTATIC RENAL CELL CARCINOMA
     Route: 048
     Dates: start: 20060904, end: 20070404
  2. ATENOLOL [Concomitant]
     Route: 048

REACTIONS (1)
  - BLINDNESS [None]
